FAERS Safety Report 16101463 (Version 3)
Quarter: 2019Q3

REPORT INFORMATION
  Report Type: Spontaneous
  Country: US (occurrence: US)
  Receive Date: 20190321
  Receipt Date: 20190920
  Transmission Date: 20191004
  Serious: No
  Sender: FDA-Public Use
  Company Number: US-ADAMAS PHARMA, LLC-2019ADA00412

PATIENT
  Sex: Female
  Weight: 53.52 kg

DRUGS (10)
  1. GOCOVRI [Suspect]
     Active Substance: AMANTADINE
     Indication: DYSKINESIA
     Dosage: 137 MG, 1X/DAY, AT NIGHT
     Route: 048
     Dates: start: 20190205, end: 20190211
  2. GOCOVRI [Suspect]
     Active Substance: AMANTADINE
     Dosage: 137 MG, 1X/DAY, AT NIGHT
     Route: 048
     Dates: start: 20190310, end: 2019
  3. PAXIL [Concomitant]
     Active Substance: PAROXETINE HYDROCHLORIDE
  4. BUPROPION. [Concomitant]
     Active Substance: BUPROPION
  5. KLONOPIN [Concomitant]
     Active Substance: CLONAZEPAM
  6. GOCOVRI [Suspect]
     Active Substance: AMANTADINE
     Dosage: 137 MG, 1X/DAY, AT NIGHT
     Route: 048
     Dates: start: 20190216, end: 20190305
  7. GOCOVRI [Suspect]
     Active Substance: AMANTADINE
     Indication: DYSKINESIA
     Dosage: 68.5 MG, 1X/DAY, AT BEDTIME
     Route: 048
     Dates: start: 2019
  8. GOCOVRI [Suspect]
     Active Substance: AMANTADINE
     Dosage: 274 MG, 1X/DAY, AT NIGHT
     Route: 048
     Dates: start: 20190212, end: 20190215
  9. GOCOVRI [Suspect]
     Active Substance: AMANTADINE
     Dosage: 274 MG, 1X/DAY, AT NIGHT
     Route: 048
     Dates: start: 20190306, end: 20190309
  10. CARBIDOPA/LEVODOPA [Concomitant]
     Active Substance: CARBIDOPA\LEVODOPA

REACTIONS (5)
  - Product dose omission [Recovered/Resolved]
  - Asthenia [Recovering/Resolving]
  - Insomnia [Not Recovered/Not Resolved]
  - Dry mouth [Unknown]
  - Fatigue [Recovering/Resolving]

NARRATIVE: CASE EVENT DATE: 2019
